FAERS Safety Report 24025547 (Version 1)
Quarter: 2024Q2

REPORT INFORMATION
  Report Type: Spontaneous
  Country: GB (occurrence: GB)
  Receive Date: 20240628
  Receipt Date: 20240628
  Transmission Date: 20240716
  Serious: No
  Sender: FDA-Public Use
  Company Number: GB-MHRA-MED-202309061756321830-NKFBQ

PATIENT
  Age: 54 Year
  Sex: Female
  Weight: 110.0 kg

DRUGS (1)
  1. ALECTINIB [Suspect]
     Active Substance: ALECTINIB
     Indication: Lung carcinoma cell type unspecified stage IV
     Route: 065

REACTIONS (1)
  - Memory impairment [Not Recovered/Not Resolved]
